FAERS Safety Report 22637490 (Version 1)
Quarter: 2023Q2

REPORT INFORMATION
  Report Type: Spontaneous
  Country: BE (occurrence: BE)
  Receive Date: 20230626
  Receipt Date: 20230626
  Transmission Date: 20230722
  Serious: Yes (Hospitalization, Other)
  Sender: FDA-Public Use
  Company Number: BE-BoehringerIngelheim-2023-BI-245832

PATIENT
  Age: 83 Year
  Sex: Female

DRUGS (1)
  1. JARDIANCE [Suspect]
     Active Substance: EMPAGLIFLOZIN
     Indication: Cardiac failure

REACTIONS (3)
  - Genitourinary tract infection [Recovering/Resolving]
  - Renal abscess [Recovering/Resolving]
  - General physical health deterioration [Recovering/Resolving]
